FAERS Safety Report 25004875 (Version 1)
Quarter: 2025Q1

REPORT INFORMATION
  Report Type: Report from Study
  Country: ES (occurrence: ES)
  Receive Date: 20250224
  Receipt Date: 20250224
  Transmission Date: 20250409
  Serious: Yes (Other)
  Sender: TEVA
  Company Number: ES-TEVA-VS-3300142

PATIENT
  Age: 66 Year
  Sex: Female

DRUGS (9)
  1. TERIPARATIDE [Suspect]
     Active Substance: TERIPARATIDE
     Indication: Osteoporosis
     Route: 065
     Dates: start: 20250213
  2. ABATACEPT [Concomitant]
     Active Substance: ABATACEPT
     Indication: Rheumatoid arthritis
     Dosage: 1 INJECTION WEEKLY, START DATE: LONG TIME; END DATE: CONTINUED
  3. CORTISONE [Concomitant]
     Active Substance: CORTISONE
     Indication: Rheumatoid arthritis
     Dosage: CORTISONE 2,5; ONE IN THE MORNING; START DATE: LONG TIME; END DATE: CONTINUED
  4. ACETAMINOPHEN [Concomitant]
     Active Substance: ACETAMINOPHEN
     Indication: Fibromyalgia
     Dosage: ONE IN THE MORNING AND ONE AT NIGHT; START DATE: LONG TIME; END DATE: CONTINUED
  5. OMEPRAZOLE [Concomitant]
     Active Substance: OMEPRAZOLE
     Indication: Gastritis prophylaxis
     Dosage: ONE IN THE MORNING; START DATE: LONG TIME; END DATE: CONTINUED
  6. CYMBALTA [Concomitant]
     Active Substance: DULOXETINE HYDROCHLORIDE
     Indication: Depression
     Dosage: CYMBALTA 60, ONE IN THE MORNING; START DATE: LONG TIME; END DATE: CONTINUED
  7. Lexatin [Concomitant]
     Indication: Anxiety
     Dosage: LEXATIN 1,5; ONE IN THE MORNING AND ONE AT NIGHT; START DATE: LONG TIME, END DATE: CONTINUED
  8. Lexatin [Concomitant]
     Indication: Anxiety
     Dosage: LEXATIN 1,5; ONE AT NIGHT; END DATE: CONTINUED
     Dates: start: 20250213
  9. RED RICE [Concomitant]
     Indication: Hypercholesterolaemia
     Dosage: ONE AT NIGHT; START DATE: LONG TIME; END DATE: CONTINUED

REACTIONS (9)
  - Chills [Not Recovered/Not Resolved]
  - Vision blurred [Recovered/Resolved]
  - Discomfort [Not Recovered/Not Resolved]
  - Malaise [Unknown]
  - Pyrexia [Not Recovered/Not Resolved]
  - Vomiting [Recovered/Resolved]
  - Myalgia [Not Recovered/Not Resolved]
  - Malaise [Unknown]
  - Feeling abnormal [Unknown]

NARRATIVE: CASE EVENT DATE: 20250213
